FAERS Safety Report 19818391 (Version 1)
Quarter: 2021Q3

REPORT INFORMATION
  Report Type: Spontaneous
  Country: US (occurrence: US)
  Receive Date: 20210911
  Receipt Date: 20210911
  Transmission Date: 20211014
  Serious: Yes (Other)
  Sender: FDA-Public Use
  Company Number: US-AMGEN-USASP2021135805

PATIENT
  Age: 67 Year
  Sex: Male

DRUGS (2)
  1. BEVACIZUMAB. [Suspect]
     Active Substance: BEVACIZUMAB
     Indication: OFF LABEL USE
  2. BEVACIZUMAB. [Suspect]
     Active Substance: BEVACIZUMAB
     Indication: NEOVASCULAR AGE-RELATED MACULAR DEGENERATION
     Dosage: UNK

REACTIONS (10)
  - Anterior chamber flare [Unknown]
  - Ciliary body disorder [Unknown]
  - Vitreous haemorrhage [Recovering/Resolving]
  - Off label use [Unknown]
  - Anterior chamber cell [Unknown]
  - Nausea [Unknown]
  - Hypotony of eye [Recovered/Resolved]
  - Cataract subcapsular [Unknown]
  - Pyrexia [Unknown]
  - Headache [Unknown]
